FAERS Safety Report 9058293 (Version 1)
Quarter: 2012Q4

REPORT INFORMATION
  Report Type: 
  Country: US (occurrence: US)
  Receive Date: 20121003
  Receipt Date: 20121003
  Transmission Date: 20130627
  Serious: Yes (Hospitalization)
  Sender: FDA-Public Use
  Company Number: US-CTI_01484_2012

PATIENT
  Sex: Male

DRUGS (2)
  1. CARDENE [Suspect]
     Indication: BLOOD PRESSURE SYSTOLIC INCREASED
     Dosage: DF
     Route: 042
  2. CARDENE [Suspect]
     Indication: CEREBRAL HAEMORRHAGE
     Dosage: DF
     Route: 042

REACTIONS (1)
  - Renal failure acute [Recovered/Resolved]
